FAERS Safety Report 7335142-4 (Version None)
Quarter: 2011Q1

REPORT INFORMATION
  Report Type: 
  Country: None (occurrence: None)
  Receive Date: 20110307
  Receipt Date: 20110301
  Transmission Date: 20110831
  Serious: Yes (Other)
  Sender: FDA-Public Use
  Company Number: US-JNJFOC-20110200033

PATIENT
  Sex: Male

DRUGS (2)
  1. LEVAQUIN [Suspect]
     Indication: PROSTATE INFECTION
     Route: 048
  2. LEVAQUIN [Suspect]
     Indication: NASAL OPERATION
     Route: 048

REACTIONS (5)
  - TENDON RUPTURE [None]
  - POSTERIOR CAPSULE RUPTURE [None]
  - TENDON DISORDER [None]
  - TENOSYNOVITIS [None]
  - PLANTAR FASCIITIS [None]
